FAERS Safety Report 9592237 (Version 3)
Quarter: 2013Q4

REPORT INFORMATION
  Report Type: Spontaneous
  Country: BR (occurrence: BR)
  Receive Date: 20131004
  Receipt Date: 20131015
  Transmission Date: 20140711
  Serious: Yes (Hospitalization)
  Sender: FDA-Public Use
  Company Number: BR-AMGEN-BRASP2012001544

PATIENT
  Age: 5 Year
  Sex: Male
  Weight: 15.9 kg

DRUGS (4)
  1. ENBREL [Suspect]
     Indication: JUVENILE IDIOPATHIC ARTHRITIS
     Dosage: 25 MG, ONCE WEEKLY
     Route: 058
     Dates: start: 201007, end: 201309
  2. PREDNISOLONE [Concomitant]
     Dosage: 1ML IN THE MORMING AND 0.25ML AT NIGHT
     Route: 048
     Dates: start: 2009
  3. NAPROXEN [Concomitant]
     Dosage: A HALF OF TABLET (UNSPECIFIED DOSAGE) IN THE MORNING AND AT NIGHT
  4. METHOTREXATE [Concomitant]
     Dosage: 3 TABLETS (UNSPECIFIED DOSAGE) ONCE WEEKLY

REACTIONS (4)
  - Juvenile idiopathic arthritis [Unknown]
  - Body height below normal [Unknown]
  - Oedema peripheral [Unknown]
  - Gait disturbance [Unknown]
